FAERS Safety Report 19047115 (Version 1)
Quarter: 2021Q1

REPORT INFORMATION
  Report Type: Report from Study
  Country: IT (occurrence: IT)
  Receive Date: 20210323
  Receipt Date: 20210323
  Transmission Date: 20210420
  Serious: Yes (Other)
  Sender: FDA-Public Use
  Company Number: IT-BAYER-2021-102567

PATIENT
  Age: 37 Year
  Sex: Female
  Weight: 60 kg

DRUGS (1)
  1. YAZ [Suspect]
     Active Substance: DROSPIRENONE\ETHINYL ESTRADIOL
     Indication: ORAL CONTRACEPTION
     Dosage: 1 DF, QD
     Route: 048

REACTIONS (5)
  - Hypertension [Recovered/Resolved]
  - Vitreous floaters [Recovered/Resolved]
  - Retinal haemorrhage [Recovered/Resolved]
  - Visual field defect [Recovered/Resolved]
  - Retinal vein thrombosis [Recovered/Resolved]

NARRATIVE: CASE EVENT DATE: 20200501
